FAERS Safety Report 8366072-7 (Version None)
Quarter: 2012Q2

REPORT INFORMATION
  Report Type: 
  Country: None (occurrence: None)
  Receive Date: 20120517
  Receipt Date: 20120508
  Transmission Date: 20120825
  Serious: Yes (Other)
  Sender: FDA-Public Use
  Company Number: BR-ELI_LILLY_AND_COMPANY-BR201205003028

PATIENT
  Sex: Female
  Weight: 89 kg

DRUGS (5)
  1. SERTRALINA [Concomitant]
     Indication: DEPRESSION
     Dosage: UNK, UNKNOWN
     Route: 065
  2. FEXOFENADINE HYDROCHLORIDE [Concomitant]
     Indication: ANTIALLERGIC THERAPY
     Dosage: UNK, UNKNOWN
     Route: 065
  3. LEVOFLOXACIN [Concomitant]
     Indication: BACTERIAL INFECTION
     Dosage: UNK, UNKNOWN
     Route: 065
  4. CYMBALTA [Suspect]
     Dosage: 30 MG, QD
     Route: 048
     Dates: start: 20120410
  5. LEVODROPROPIZINE [Concomitant]
     Indication: COUGH
     Dosage: UNK, UNKNOWN
     Route: 065

REACTIONS (3)
  - ASPHYXIA [None]
  - COUGH [None]
  - APHONIA [None]
